FAERS Safety Report 26007506 (Version 1)
Quarter: 2025Q4

REPORT INFORMATION
  Report Type: Spontaneous
  Country: US (occurrence: None)
  Receive Date: 20251106
  Receipt Date: 20251106
  Transmission Date: 20260117
  Serious: Yes (Other)
  Sender: FDA-CTU
  Company Number: None

PATIENT
  Age: 77 Year
  Sex: Female

DRUGS (1)
  1. DALFAMPRIDINE [Suspect]
     Active Substance: DALFAMPRIDINE
     Dosage: FREQUENCY : TWICE A DAY;?
     Route: 048
     Dates: start: 20250517, end: 20251104

REACTIONS (3)
  - Seizure [None]
  - Dehydration [None]
  - Alcohol use [None]

NARRATIVE: CASE EVENT DATE: 20251104
